FAERS Safety Report 18266197 (Version 1)
Quarter: 2020Q3

REPORT INFORMATION
  Report Type: Spontaneous
  Country: DE (occurrence: DE)
  Receive Date: 20200915
  Receipt Date: 20200915
  Transmission Date: 20201103
  Serious: Yes (Hospitalization, Other)
  Sender: FDA-Public Use
  Company Number: DE-SA-2020SA249577

PATIENT

DRUGS (1)
  1. LEMTRADA [Suspect]
     Active Substance: ALEMTUZUMAB
     Indication: MULTIPLE SCLEROSIS
     Dosage: 12 MG
     Route: 042
     Dates: start: 20170814, end: 20180718

REACTIONS (7)
  - Pyrexia [Recovered/Resolved]
  - Pyrexia [Recovered/Resolved]
  - Varicella zoster virus infection [Unknown]
  - Rash [Recovered/Resolved]
  - Headache [Recovered/Resolved]
  - Sensory disturbance [Unknown]
  - Erysipelas [Recovered/Resolved]

NARRATIVE: CASE EVENT DATE: 20170814
